FAERS Safety Report 8381956-1 (Version None)
Quarter: 2012Q2

REPORT INFORMATION
  Report Type: 
  Country: None (occurrence: None)
  Receive Date: 20120522
  Receipt Date: 20120522
  Transmission Date: 20120825
  Serious: Yes (Hospitalization)
  Sender: FDA-Public Use
  Company Number: None

PATIENT
  Sex: Male
  Weight: 61.9 kg

DRUGS (18)
  1. LAMIVUDINE [Concomitant]
  2. SEVELAMER [Concomitant]
  3. ROFERON-A [Suspect]
     Indication: HEPATITIS C
     Dosage: 180 MCG ONCE WEEKLY SQ
     Route: 058
     Dates: start: 20110815, end: 20110912
  4. CINACALCET HYDROCHLORIDE [Concomitant]
  5. SENNA-MINT WAF [Concomitant]
  6. IBUPROFEN [Concomitant]
  7. TOPROL-XL [Concomitant]
  8. ZOFRAN [Concomitant]
  9. PROTONIX [Concomitant]
  10. VANCOMYCIN [Concomitant]
  11. BENAZEPRIL HYDROCHLORIDE [Concomitant]
  12. LORATADINE [Concomitant]
  13. NEVIRAPINE [Concomitant]
  14. RIBAVIRIN [Concomitant]
  15. ABACAVIR [Concomitant]
  16. GABAPENTIN [Concomitant]
  17. HYDROXYZINE [Concomitant]
  18. RISPERDAL [Concomitant]

REACTIONS (1)
  - ACUTE PSYCHOSIS [None]
